FAERS Safety Report 4716500-0 (Version None)
Quarter: 2005Q3

REPORT INFORMATION
  Report Type: 
  Country: None (occurrence: None)
  Receive Date: 20050713
  Receipt Date: 20050706
  Transmission Date: 20060218
  Serious: Yes (Death)
  Sender: FDA-Public Use
  Company Number: 200510471BFR

PATIENT
  Age: 79 Year
  Sex: Female

DRUGS (6)
  1. CIPROFLOXACIN [Suspect]
     Indication: LUNG DISORDER
     Dosage: NI, QD, ORAL
     Route: 048
     Dates: start: 20050519, end: 20050601
  2. ROCEPHIN [Suspect]
     Indication: LUNG DISORDER
     Dosage: 2 G, TOTAL DAILY, INTRAVENOUS
     Route: 042
     Dates: start: 20050519, end: 20050531
  3. DUPHALAC [Concomitant]
  4. LASIX [Concomitant]
  5. SUCRALFATE [Concomitant]
  6. MONO-TILDIEM [Concomitant]

REACTIONS (1)
  - TOXIC EPIDERMAL NECROLYSIS [None]
